FAERS Safety Report 4699467-3 (Version None)
Quarter: 2005Q2

REPORT INFORMATION
  Report Type: 
  Country: None (occurrence: None)
  Receive Date: 20050622
  Receipt Date: 20050609
  Transmission Date: 20051028
  Serious: Yes (Hospitalization)
  Sender: FDA-Public Use
  Company Number: 2005EU001076

PATIENT
  Age: 30 Year
  Sex: Female

DRUGS (5)
  1. FK506                 (TACROLIMUS) [Suspect]
     Indication: RENAL TRANSPLANT
     Dosage: 6.00 MG, D, ORAL
     Route: 048
  2. RAPAMUNE [Suspect]
     Indication: RENAL TRANSPLANT
     Dosage: 5.00 MG, UID/QD/, ORAL
     Route: 048
     Dates: start: 20041116, end: 20041224
  3. RAPAMUNE [Suspect]
     Indication: RENAL TRANSPLANT
     Dosage: 4.00 MG, UID/QD, ORAL
     Route: 048
     Dates: start: 20041225, end: 20050110
  4. RAPAMUNE [Suspect]
     Indication: RENAL TRANSPLANT
     Dosage: 3.00 MG, UID/QD, ORAL
     Route: 048
     Dates: start: 20050111
  5. CIPROXIN [Concomitant]

REACTIONS (1)
  - LYMPHOCELE [None]
